FAERS Safety Report 6491658-4 (Version None)
Quarter: 2009Q4

REPORT INFORMATION
  Report Type: 
  Country: None (occurrence: None)
  Receive Date: 20091211
  Receipt Date: 20091203
  Transmission Date: 20100525
  Serious: Yes (Disabling)
  Sender: FDA-Public Use
  Company Number: JP-MERCK-0912USA01000

PATIENT
  Age: 80 Year
  Sex: Female

DRUGS (6)
  1. FOSAMAX [Suspect]
     Route: 048
     Dates: start: 20061101
  2. TAKEPRON [Concomitant]
     Dosage: DAILY DOSAGE UNKNOWN
     Route: 048
  3. ALDACTONE [Concomitant]
     Dosage: DAILY DOSAGE UNKNOWN
     Route: 048
  4. MEVALOTIN [Concomitant]
     Dosage: DAILY DOSAGE UNKNOWN
     Route: 048
  5. DIOVAN [Concomitant]
     Dosage: DAILY DOSAGE UNKNOWN
     Route: 048
  6. GASMOTIN [Concomitant]
     Dosage: DAILY DOSAGE UNKNOWN
     Route: 048

REACTIONS (1)
  - OSTEOMYELITIS [None]
